FAERS Safety Report 5409392-8 (Version None)
Quarter: 2007Q3

REPORT INFORMATION
  Report Type: 
  Country: None (occurrence: None)
  Receive Date: 20070808
  Receipt Date: 20070808
  Transmission Date: 20080115
  Serious: No
  Sender: FDA-Public Use
  Company Number: None

PATIENT
  Sex: Female
  Weight: 45.3597 kg

DRUGS (2)
  1. FORTICAL [Suspect]
     Indication: BURNING SENSATION
     Dosage: 1 ONCE DAILY NASAL
     Route: 045
     Dates: start: 20070727, end: 20070727
  2. FORTICAL [Suspect]
     Indication: PAIN
     Dosage: 1 ONCE DAILY NASAL
     Route: 045
     Dates: start: 20070727, end: 20070727

REACTIONS (2)
  - EYE PAIN [None]
  - NASAL DISCOMFORT [None]
